FAERS Safety Report 19146792 (Version 1)
Quarter: 2021Q2

REPORT INFORMATION
  Report Type: Spontaneous
  Country: US (occurrence: US)
  Receive Date: 20210416
  Receipt Date: 20210416
  Transmission Date: 20210717
  Serious: No
  Sender: FDA-Public Use
  Company Number: US-PFIZER INC-2021389381

PATIENT
  Age: 63 Year
  Sex: Female
  Weight: 92.1 kg

DRUGS (30)
  1. BOTULINUM TOXIN TYPE A [Concomitant]
     Active Substance: BOTULINUM TOXIN TYPE A
     Dosage: 6.25 IU, SINGLE
     Dates: start: 20210318, end: 20210318
  2. SINGULAIR [Concomitant]
     Active Substance: MONTELUKAST SODIUM
     Dosage: UNK
  3. LEVOTHYROXINE. [Concomitant]
     Active Substance: LEVOTHYROXINE
     Dosage: UNK
  4. GABAPENTIN. [Suspect]
     Active Substance: GABAPENTIN
     Indication: RESTLESS LEGS SYNDROME
     Dosage: UNK
  5. BOTULINUM TOXIN TYPE A [Concomitant]
     Active Substance: BOTULINUM TOXIN TYPE A
     Dosage: 10 IU, SINGLE
     Dates: start: 20210318, end: 20210318
  6. BOTULINUM TOXIN TYPE A [Concomitant]
     Active Substance: BOTULINUM TOXIN TYPE A
     Dosage: 6.25 IU, SINGLE
     Dates: start: 20210318, end: 20210318
  7. BOTULINUM TOXIN TYPE A [Concomitant]
     Active Substance: BOTULINUM TOXIN TYPE A
     Dosage: 6.25 IU, SINGLE
     Dates: start: 20210318, end: 20210318
  8. BOTULINUM TOXIN TYPE A [Concomitant]
     Active Substance: BOTULINUM TOXIN TYPE A
     Dosage: 10 IU, SINGLE
     Dates: start: 20210318, end: 20210318
  9. TOBRADEX [Concomitant]
     Active Substance: DEXAMETHASONE\TOBRAMYCIN
     Dosage: UNK
  10. BOTULINUM TOXIN TYPE A [Concomitant]
     Active Substance: BOTULINUM TOXIN TYPE A
     Dosage: 6.25 IU, SINGLE
     Dates: start: 20210318, end: 20210318
  11. BOTULINUM TOXIN TYPE A [Concomitant]
     Active Substance: BOTULINUM TOXIN TYPE A
     Dosage: 5 IU, SINGLE
     Dates: start: 20210318, end: 20210318
  12. TRAMADOL. [Concomitant]
     Active Substance: TRAMADOL
     Dosage: UNK
  13. VITRON?C [Concomitant]
     Active Substance: ASCORBIC ACID\IRON
     Dosage: UNK
  14. VITAMIN B12 [Concomitant]
     Active Substance: CYANOCOBALAMIN
     Dosage: UNK
  15. BOTULINUM TOXIN TYPE A [Concomitant]
     Active Substance: BOTULINUM TOXIN TYPE A
     Dosage: 7.5 IU, SINGLE
     Dates: start: 20210318, end: 20210318
  16. IRON [Concomitant]
     Active Substance: IRON
  17. LORAZEPAM. [Concomitant]
     Active Substance: LORAZEPAM
     Dosage: UNK
  18. NEXIUM [Concomitant]
     Active Substance: ESOMEPRAZOLE MAGNESIUM
     Dosage: UNK
  19. OXYCODONE [Concomitant]
     Active Substance: OXYCODONE
     Dosage: UNK
  20. GABAPENTIN. [Suspect]
     Active Substance: GABAPENTIN
     Indication: NEURALGIA
  21. BOTULINUM TOXIN TYPE A [Concomitant]
     Active Substance: BOTULINUM TOXIN TYPE A
     Dosage: 6.25 IU, SINGLE
     Dates: start: 20210318, end: 20210318
  22. BOTULINUM TOXIN TYPE A [Concomitant]
     Active Substance: BOTULINUM TOXIN TYPE A
     Dosage: 6.25 IU, SINGLE
     Dates: start: 20210318, end: 20210318
  23. ATIVAN [Concomitant]
     Active Substance: LORAZEPAM
  24. MAGNESIUM OXIDE. [Concomitant]
     Active Substance: MAGNESIUM OXIDE
     Dosage: UNK
  25. BOTULINUM TOXIN TYPE A [Concomitant]
     Active Substance: BOTULINUM TOXIN TYPE A
     Dosage: 5 IU, SINGLE
     Dates: start: 20210318, end: 20210318
  26. BOTULINUM TOXIN TYPE A [Concomitant]
     Active Substance: BOTULINUM TOXIN TYPE A
     Dosage: UNK UNK, SINGLE
     Dates: start: 2006, end: 2006
  27. BOTULINUM TOXIN TYPE A [Concomitant]
     Active Substance: BOTULINUM TOXIN TYPE A
     Indication: BLEPHAROSPASM
     Dosage: 10 IU, SINGLE
     Route: 065
     Dates: start: 20210318, end: 20210318
  28. BOTULINUM TOXIN TYPE A [Concomitant]
     Active Substance: BOTULINUM TOXIN TYPE A
     Dosage: 6.25 IU, SINGLE
     Dates: start: 20210318, end: 20210318
  29. BOTULINUM TOXIN TYPE A [Concomitant]
     Active Substance: BOTULINUM TOXIN TYPE A
     Dosage: 6.25 IU, SINGLE
     Dates: start: 20210318, end: 20210318
  30. ZINC. [Concomitant]
     Active Substance: ZINC
     Dosage: UNK

REACTIONS (4)
  - Drug effective for unapproved indication [Unknown]
  - Drug ineffective for unapproved indication [Recovering/Resolving]
  - Off label use [Unknown]
  - Somnolence [Recovering/Resolving]
